FAERS Safety Report 16037638 (Version 1)
Quarter: 2019Q1

REPORT INFORMATION
  Report Type: Report from Study
  Country: GB (occurrence: GB)
  Receive Date: 20190305
  Receipt Date: 20190305
  Transmission Date: 20190418
  Serious: Yes (Other)
  Sender: FDA-Public Use
  Company Number: GB-MYLANLABS-2019M1020139

PATIENT
  Age: 45 Year
  Sex: Male

DRUGS (4)
  1. GABAPENTIN. [Suspect]
     Active Substance: GABAPENTIN
     Indication: FIBROMATOSIS
  2. TRAMADOL. [Suspect]
     Active Substance: TRAMADOL
     Indication: FIBROMATOSIS
     Route: 065
  3. TRAMADOL. [Suspect]
     Active Substance: TRAMADOL
     Indication: DESMOID TUMOUR
  4. GABAPENTIN. [Suspect]
     Active Substance: GABAPENTIN
     Indication: DESMOID TUMOUR
     Route: 065

REACTIONS (3)
  - Drug withdrawal syndrome [Unknown]
  - Drug dependence [Unknown]
  - Feeling abnormal [Unknown]
